FAERS Safety Report 6546708-3 (Version None)
Quarter: 2010Q1

REPORT INFORMATION
  Report Type: 
  Country: None (occurrence: None)
  Receive Date: 20100122
  Receipt Date: 20100119
  Transmission Date: 20100710
  Serious: Yes (Death)
  Sender: FDA-Public Use
  Company Number: GB-ROCHE-679255

PATIENT
  Sex: Female

DRUGS (2)
  1. BEVACIZUMAB [Suspect]
     Indication: COLON CANCER
     Dosage: FORM: INFUSION, CURRENT CYCLE: 4; LAST DOSE PRIOR TO SAE: 23 DEC 2009
     Route: 042
     Dates: start: 20091020
  2. CAPECITABINE [Suspect]
     Indication: COLON CANCER
     Dosage: DOSE: 2000 MG AM AND 2500 MG PM; CURRENT CYCLE: 4 FORMULATION AS PER PROTOCOL; LAST DOSE: 23 DEC 09
     Route: 048
     Dates: start: 20091020

REACTIONS (1)
  - DEEP VEIN THROMBOSIS [None]
